FAERS Safety Report 10667679 (Version 2)
Quarter: 2015Q1

REPORT INFORMATION
  Report Type: Spontaneous
  Country: RU (occurrence: RU)
  Receive Date: 20141222
  Receipt Date: 20150217
  Transmission Date: 20150720
  Serious: Yes (Death)
  Sender: FDA-Public Use
  Company Number: RU-SA-2014SA171556

PATIENT
  Sex: Male

DRUGS (3)
  1. PLAVIX [Suspect]
     Active Substance: CLOPIDOGREL BISULFATE
     Indication: THROMBOSIS PROPHYLAXIS
     Route: 048
  2. INTEGRILIN [Concomitant]
     Active Substance: EPTIFIBATIDE
     Indication: THROMBOSIS PROPHYLAXIS
  3. HEPARIN [Concomitant]
     Active Substance: HEPARIN SODIUM
     Indication: THROMBOSIS PROPHYLAXIS

REACTIONS (2)
  - Overdose [Unknown]
  - Thrombosis in device [Fatal]
